FAERS Safety Report 8254587-1 (Version None)
Quarter: 2012Q2

REPORT INFORMATION
  Report Type: 
  Country: None (occurrence: None)
  Receive Date: 20120403
  Receipt Date: 20120327
  Transmission Date: 20120825
  Serious: Yes (Other)
  Sender: FDA-Public Use
  Company Number: US-AMGEN-USASP2012019503

PATIENT
  Age: 82 Year
  Sex: Female

DRUGS (10)
  1. POTASSIUM [Concomitant]
  2. PROLIA [Suspect]
     Indication: OSTEOPOROSIS POSTMENOPAUSAL
     Dates: start: 20110801
  3. METOPROLOL TARTRATE [Concomitant]
  4. VITAMINS NOS [Concomitant]
  5. CALCIUM CARBONATE [Concomitant]
  6. PENTOXIFYLLINE [Concomitant]
  7. CENTRUM SILVER                     /01292501/ [Concomitant]
  8. VITAMIN D [Concomitant]
  9. LESCOL [Concomitant]
  10. DETROL [Concomitant]

REACTIONS (5)
  - PAIN IN JAW [None]
  - PAIN IN EXTREMITY [None]
  - EAR PAIN [None]
  - VENOUS THROMBOSIS LIMB [None]
  - ARTHRALGIA [None]
